FAERS Safety Report 7401944-9 (Version None)
Quarter: 2011Q2

REPORT INFORMATION
  Report Type: 
  Country: None (occurrence: None)
  Receive Date: 20110408
  Receipt Date: 20110331
  Transmission Date: 20111010
  Serious: Yes (Other)
  Sender: FDA-Public Use
  Company Number: JP-PFIZER INC-2011072287

PATIENT
  Age: 63 Year
  Sex: Male

DRUGS (6)
  1. MAGNESIUM OXIDE [Concomitant]
  2. NEUROTROPIN [Concomitant]
     Dosage: UNK
  3. TEPRENONE [Concomitant]
     Dosage: UNK
  4. GLICLAZIDE [Concomitant]
     Dosage: 20 MG, 3X/DAY
  5. NU LOTAN [Concomitant]
     Dosage: 25 MG, 3X/DAY
  6. LYRICA [Suspect]
     Dosage: 75 MG, 2X/DAY
     Route: 048
     Dates: start: 20110318, end: 20110323

REACTIONS (2)
  - CONVULSION [None]
  - MUSCULOSKELETAL STIFFNESS [None]
